FAERS Safety Report 16134232 (Version 2)
Quarter: 2019Q2

REPORT INFORMATION
  Report Type: Report from Study
  Country: AR (occurrence: AR)
  Receive Date: 20190329
  Receipt Date: 20190402
  Transmission Date: 20190711
  Serious: Yes (Death, Hospitalization, Other)
  Sender: FDA-Public Use
  Company Number: PHHY2019AR071007

PATIENT
  Sex: Female

DRUGS (3)
  1. ENSURE [Concomitant]
     Active Substance: AMINO ACIDS\DEXTROSE\ELECTROLYTES NOS\SOYBEAN OIL\VITAMINS
     Indication: PRODUCT USED FOR UNKNOWN INDICATION
     Dosage: UNK
     Route: 065
  2. CLONAZEPAM. [Suspect]
     Active Substance: CLONAZEPAM
     Indication: PRODUCT USED FOR UNKNOWN INDICATION
     Dosage: 0.5 DF, (HALF UNSPECIFIED AMOUNT OF MG)
     Route: 065
  3. AFINITOR [Suspect]
     Active Substance: EVEROLIMUS
     Indication: BREAST CANCER
     Dosage: 10 MG, QD
     Route: 048
     Dates: start: 20181220

REACTIONS (16)
  - Pneumonia [Fatal]
  - Lung neoplasm malignant [Unknown]
  - Respiratory disorder [Unknown]
  - Metastases to central nervous system [Unknown]
  - Fall [Unknown]
  - General physical health deterioration [Unknown]
  - Appetite disorder [Unknown]
  - Back pain [Unknown]
  - Second primary malignancy [Unknown]
  - Metastases to bone [Unknown]
  - Breast cancer [Fatal]
  - Malignant neoplasm progression [Fatal]
  - Cardio-respiratory arrest [Fatal]
  - Vomiting [Unknown]
  - Bronchitis [Unknown]
  - Agitation [Unknown]
